FAERS Safety Report 19072128 (Version 2)
Quarter: 2021Q3

REPORT INFORMATION
  Report Type: Spontaneous
  Country: GB (occurrence: GB)
  Receive Date: 20210330
  Receipt Date: 20210823
  Transmission Date: 20211014
  Serious: Yes (Death, Hospitalization)
  Sender: FDA-Public Use
  Company Number: PHHY2019GB018593

PATIENT
  Age: 33 Year
  Sex: Female

DRUGS (68)
  1. TAMOXIFEN [Suspect]
     Active Substance: TAMOXIFEN
     Indication: HER2 POSITIVE BREAST CANCER
     Dosage: UNK
     Route: 065
     Dates: start: 20170623, end: 20171228
  2. TRASTUZUMAB. [Suspect]
     Active Substance: TRASTUZUMAB
     Indication: HER2 POSITIVE BREAST CANCER
     Dosage: 567 MG, QD(LOADING DOSE)
     Route: 041
     Dates: start: 20160609, end: 20160609
  3. PERTUZUMAB. [Suspect]
     Active Substance: PERTUZUMAB
     Dosage: 420 MG, Q3W
     Route: 042
     Dates: start: 20160701
  4. ADCAL D3 [Concomitant]
     Active Substance: CALCIUM CARBONATE\CHOLECALCIFEROL
     Indication: PRODUCT USED FOR UNKNOWN INDICATION
     Dosage: UNK,0.5
     Route: 048
     Dates: start: 20170621
  5. FILGRASTIM [Concomitant]
     Active Substance: FILGRASTIM
     Indication: PRODUCT USED FOR UNKNOWN INDICATION
     Dosage: 300 UG
     Route: 065
     Dates: start: 20160731, end: 20161112
  6. ENOXAPARIN [Concomitant]
     Active Substance: ENOXAPARIN
     Dosage: UNK, QD
     Route: 058
     Dates: start: 20180214, end: 20180218
  7. SALBUTAMOL [Concomitant]
     Active Substance: ALBUTEROL
     Dosage: UNK
     Route: 055
     Dates: start: 20160822, end: 20160908
  8. METOCLOPRAMIDE. [Concomitant]
     Active Substance: METOCLOPRAMIDE
     Indication: PRODUCT USED FOR UNKNOWN INDICATION
     Dosage: 10MG
     Route: 048
     Dates: start: 20160610, end: 20161111
  9. METOCLOPRAMIDE. [Concomitant]
     Active Substance: METOCLOPRAMIDE
     Dosage: 10 MG
     Route: 048
     Dates: start: 20180106, end: 20180106
  10. SEPTRIN [Concomitant]
     Active Substance: SULFAMETHOXAZOLE\TRIMETHOPRIM
     Indication: PRODUCT USED FOR UNKNOWN INDICATION
     Dosage: 2112MG
     Route: 042
     Dates: start: 20160811, end: 20160816
  11. CODINE LINCTUS [Concomitant]
     Indication: PRODUCT USED FOR UNKNOWN INDICATION
     Dosage: 10ML
     Route: 048
     Dates: start: 20170619, end: 20170619
  12. TRASTUZUMAB. [Suspect]
     Active Substance: TRASTUZUMAB
     Dosage: 472.5 MG, TIW
     Route: 042
     Dates: start: 20170519, end: 20171228
  13. TRASTUZUMAB. [Suspect]
     Active Substance: TRASTUZUMAB
     Dosage: 472.5 MG, TIW
     Route: 042
     Dates: start: 20170612, end: 20171228
  14. PERTUZUMAB. [Suspect]
     Active Substance: PERTUZUMAB
     Indication: HER2 POSITIVE BREAST CANCER
     Dosage: LOADING DOSE
     Route: 042
     Dates: start: 20160609, end: 20160609
  15. TRASTUZUMAB EMTANSINE [Suspect]
     Active Substance: ADO-TRASTUZUMAB EMTANSINE
     Indication: HER2 POSITIVE BREAST CANCER
     Dosage: 280 MG
     Route: 041
     Dates: start: 20180131
  16. METOCLOPRAMIDE. [Concomitant]
     Active Substance: METOCLOPRAMIDE
     Dosage: 10 MG
     Route: 048
     Dates: start: 20180131
  17. GENTAMICIN. [Concomitant]
     Active Substance: GENTAMICIN
     Dosage: 375 MG, QD
     Route: 042
     Dates: start: 20161009, end: 20161009
  18. PARACETAMOL [Concomitant]
     Active Substance: ACETAMINOPHEN
     Dosage: 5 G
     Route: 048
     Dates: start: 20160803
  19. PARACETAMOL [Concomitant]
     Active Substance: ACETAMINOPHEN
     Dosage: 1 G, QD
     Route: 048
     Dates: start: 20160722, end: 20160724
  20. PIPERACILLIN SODIUM [Concomitant]
     Active Substance: PIPERACILLIN SODIUM
     Indication: PRODUCT USED FOR UNKNOWN INDICATION
     Dosage: 4.5 MG, TID
     Route: 065
     Dates: start: 20180212, end: 20180214
  21. TRASTUZUMAB. [Suspect]
     Active Substance: TRASTUZUMAB
     Dosage: 420 MG, TIW
     Route: 042
     Dates: start: 20170224, end: 20170407
  22. ENOXAPARIN [Concomitant]
     Active Substance: ENOXAPARIN
     Dosage: 1200 MG,QD
     Route: 058
     Dates: start: 20180212, end: 20180212
  23. COTRIMOXAZOLE [Concomitant]
     Active Substance: SULFAMETHOXAZOLE\TRIMETHOPRIM
     Indication: PRODUCT USED FOR UNKNOWN INDICATION
     Dosage: 483 MG
     Route: 065
     Dates: start: 20180131, end: 20180131
  24. SEPTRIN [Concomitant]
     Active Substance: SULFAMETHOXAZOLE\TRIMETHOPRIM
     Dosage: 50 MG, TID
     Route: 065
     Dates: start: 20170902
  25. CHLORPHENAMINE [Concomitant]
     Active Substance: CHLORPHENIRAMINE MALEATE
     Dosage: 10 MG
     Route: 042
     Dates: start: 20160928, end: 20170724
  26. HYDROCORTISONE. [Concomitant]
     Active Substance: HYDROCORTISONE
     Dosage: UNK
     Route: 042
     Dates: start: 20160928, end: 20170724
  27. SALINE [Concomitant]
     Active Substance: SODIUM CHLORIDE
     Indication: PRODUCT USED FOR UNKNOWN INDICATION
     Dosage: 5 ML, Q4W
     Route: 055
     Dates: start: 20170616, end: 20170623
  28. SALINE [Concomitant]
     Active Substance: SODIUM CHLORIDE
     Dosage: 12 ML
     Route: 042
     Dates: start: 20180212, end: 20180214
  29. LANSOPRAZOLE. [Concomitant]
     Active Substance: LANSOPRAZOLE
     Dosage: 30 MG, QD
     Route: 048
     Dates: start: 20160809
  30. LEVOFLOXACIN. [Concomitant]
     Active Substance: LEVOFLOXACIN
     Indication: PRODUCT USED FOR UNKNOWN INDICATION
     Dosage: UNK
     Route: 065
     Dates: start: 20161009, end: 20161017
  31. OSELTAMIVIR [Concomitant]
     Active Substance: OSELTAMIVIR
     Indication: PRODUCT USED FOR UNKNOWN INDICATION
     Dosage: 15 MG, BID
     Route: 065
     Dates: start: 20180213, end: 20180217
  32. PARACETAMOL [Concomitant]
     Active Substance: ACETAMINOPHEN
     Dosage: 1 G
     Route: 048
     Dates: start: 20170903
  33. DOCETAXEL. [Suspect]
     Active Substance: DOCETAXEL
     Dosage: 110 MG, Q3W
     Route: 042
     Dates: start: 20160907, end: 20161021
  34. DOCETAXEL. [Suspect]
     Active Substance: DOCETAXEL
     Dosage: 108 MG, TIW
     Route: 042
     Dates: start: 20161111
  35. TRASTUZUMAB. [Suspect]
     Active Substance: TRASTUZUMAB
     Dosage: 451.5 MG, TIW
     Route: 042
     Dates: start: 20161202, end: 20170203
  36. ENOXAPARIN [Concomitant]
     Active Substance: ENOXAPARIN
     Indication: PRODUCT USED FOR UNKNOWN INDICATION
     Dosage: 40 MG,QD
     Route: 058
     Dates: start: 20170616, end: 20170623
  37. AMOXICILLIN. [Concomitant]
     Active Substance: AMOXICILLIN
     Indication: PRODUCT USED FOR UNKNOWN INDICATION
     Dosage: UNK,QD
     Route: 048
     Dates: start: 201712, end: 201712
  38. ORAMORPH [Concomitant]
     Active Substance: MORPHINE SULFATE
     Indication: PRODUCT USED FOR UNKNOWN INDICATION
     Dosage: 2.5 MG
     Route: 048
     Dates: start: 20160828
  39. LEVOMEPROMAZINE [Concomitant]
     Active Substance: LEVOMEPROMAZINE
     Indication: PRODUCT USED FOR UNKNOWN INDICATION
     Dosage: 6.25MG
     Route: 058
     Dates: start: 20170617, end: 20170617
  40. TAMOXIFEN [Suspect]
     Active Substance: TAMOXIFEN
     Dosage: UNK
     Route: 065
     Dates: start: 20180213, end: 20180605
  41. SALBUTAMOL [Concomitant]
     Active Substance: ALBUTEROL
     Indication: PRODUCT USED FOR UNKNOWN INDICATION
     Dosage: 2.5MG
     Route: 055
     Dates: start: 20170616, end: 20170618
  42. MEROPENEM. [Concomitant]
     Active Substance: MEROPENEM
     Indication: PRODUCT USED FOR UNKNOWN INDICATION
     Dosage: 1 G
     Route: 042
     Dates: start: 20160809, end: 20160817
  43. LEVETIRACETAM. [Concomitant]
     Active Substance: LEVETIRACETAM
     Dosage: 1000 MG, QD
     Route: 058
     Dates: start: 20170617
  44. SALINE [Concomitant]
     Active Substance: SODIUM CHLORIDE
     Dosage: 12 ML
     Route: 042
     Dates: start: 20170616, end: 20170616
  45. LANSOPRAZOLE. [Concomitant]
     Active Substance: LANSOPRAZOLE
     Dosage: 30 MG, QD
     Route: 048
     Dates: start: 20160722, end: 20160724
  46. TRASTUZUMAB. [Suspect]
     Active Substance: TRASTUZUMAB
     Dosage: 451.5 MG, TIW
     Route: 042
     Dates: start: 20170428, end: 20170519
  47. TRASTUZUMAB. [Suspect]
     Active Substance: TRASTUZUMAB
     Dosage: 451.5 MG,3 (LOADING DOSE)
     Route: 042
     Dates: start: 20161021
  48. LEVETIRACETAM. [Concomitant]
     Active Substance: LEVETIRACETAM
     Dosage: 500 MG, BID
     Route: 058
     Dates: start: 20170617
  49. CHLORPHENAMINE [Concomitant]
     Active Substance: CHLORPHENIRAMINE MALEATE
     Indication: PRODUCT USED FOR UNKNOWN INDICATION
     Dosage: 10MG
     Route: 042
     Dates: start: 20170618, end: 20170619
  50. SALINE [Concomitant]
     Active Substance: SODIUM CHLORIDE
     Dosage: 12 ML
     Route: 042
     Dates: start: 20180105, end: 20180105
  51. GENTAMICIN. [Concomitant]
     Active Substance: GENTAMICIN
     Indication: PRODUCT USED FOR UNKNOWN INDICATION
     Dosage: 400 MG, BID
     Route: 042
     Dates: start: 20180212, end: 20180212
  52. RAMIPRIL. [Concomitant]
     Active Substance: RAMIPRIL
     Indication: PRODUCT USED FOR UNKNOWN INDICATION
     Dosage: 2.3 MG
     Route: 065
  53. TRASTUZUMAB. [Suspect]
     Active Substance: TRASTUZUMAB
     Dosage: 451.5 MG, TIW
     Route: 042
     Dates: start: 20161021, end: 20161111
  54. RANITIDINE. [Concomitant]
     Active Substance: RANITIDINE
     Indication: PRODUCT USED FOR UNKNOWN INDICATION
     Dosage: 50 MG
     Route: 048
     Dates: start: 20170617, end: 20170618
  55. ZOPLICONE [Concomitant]
     Active Substance: ZOPICLONE
     Indication: PRODUCT USED FOR UNKNOWN INDICATION
     Dosage: 3.75 MG
     Route: 048
     Dates: start: 20170618, end: 20170619
  56. HYDROCORTISONE. [Concomitant]
     Active Substance: HYDROCORTISONE
     Indication: PRODUCT USED FOR UNKNOWN INDICATION
     Dosage: 100 MG
     Route: 042
     Dates: start: 20160907, end: 20160907
  57. LANSOPRAZOLE. [Concomitant]
     Active Substance: LANSOPRAZOLE
     Indication: PRODUCT USED FOR UNKNOWN INDICATION
     Dosage: 30 MG, QD
     Route: 048
     Dates: start: 20161010
  58. ONDANSETRON [Concomitant]
     Active Substance: ONDANSETRON
     Indication: PRODUCT USED FOR UNKNOWN INDICATION
     Dosage: 8 MG, TID
     Route: 048
     Dates: start: 20170616, end: 20170626
  59. PARACETAMOL [Concomitant]
     Active Substance: ACETAMINOPHEN
     Indication: PRODUCT USED FOR UNKNOWN INDICATION
     Dosage: UNK
     Route: 065
     Dates: start: 20160803
  60. DOCETAXEL. [Suspect]
     Active Substance: DOCETAXEL
     Indication: HER2 POSITIVE BREAST CANCER
     Dosage: 130 MG, Q3W
     Route: 042
     Dates: start: 20160701
  61. TRASTUZUMAB. [Suspect]
     Active Substance: TRASTUZUMAB
     Dosage: 420 MG, TIW
     Route: 042
     Dates: start: 20160907, end: 20160926
  62. TRASTUZUMAB. [Suspect]
     Active Substance: TRASTUZUMAB
     Dosage: 451.5 MG, TIW
     Route: 042
     Dates: start: 20161111, end: 20170519
  63. LEVETIRACETAM. [Concomitant]
     Active Substance: LEVETIRACETAM
     Indication: PRODUCT USED FOR UNKNOWN INDICATION
     Dosage: 1G
     Route: 042
     Dates: start: 20170616, end: 20170616
  64. SEPTRIN [Concomitant]
     Active Substance: SULFAMETHOXAZOLE\TRIMETHOPRIM
     Dosage: 2112 MG
     Route: 042
     Dates: start: 20160811, end: 20160816
  65. CHLORPHENAMINE [Concomitant]
     Active Substance: CHLORPHENIRAMINE MALEATE
     Dosage: 10 MG
     Route: 042
     Dates: start: 20160907, end: 20160907
  66. SALINE [Concomitant]
     Active Substance: SODIUM CHLORIDE
     Dosage: 12 ML
     Route: 042
     Dates: start: 20170616, end: 20170623
  67. PARACETAMOL [Concomitant]
     Active Substance: ACETAMINOPHEN
     Dosage: 1 MG
     Route: 048
     Dates: start: 20160723, end: 20160724
  68. VANCOMYCIN [Concomitant]
     Active Substance: VANCOMYCIN
     Indication: PRODUCT USED FOR UNKNOWN INDICATION
     Dosage: UNK MG
     Route: 048
     Dates: start: 20161009, end: 20161009

REACTIONS (20)
  - Lower respiratory tract infection [Recovered/Resolved]
  - Dyspnoea [Not Recovered/Not Resolved]
  - Pneumonia [Recovered/Resolved]
  - Diarrhoea [Recovered/Resolved]
  - Vomiting [Not Recovered/Not Resolved]
  - Malignant neoplasm progression [Fatal]
  - Excessive eye blinking [Recovered/Resolved]
  - Nausea [Recovered/Resolved]
  - Off label use [Unknown]
  - Nausea [Recovered/Resolved]
  - Seizure [Recovering/Resolving]
  - Chest pain [Recovered/Resolved]
  - Back pain [Recovering/Resolving]
  - Pain in jaw [Recovered/Resolved]
  - Lower respiratory tract infection [Recovered/Resolved]
  - HER2 positive breast cancer [Fatal]
  - Hyponatraemia [Recovered/Resolved]
  - Nausea [Recovered/Resolved]
  - Vomiting [Recovered/Resolved]
  - Vomiting [Recovered/Resolved]

NARRATIVE: CASE EVENT DATE: 20160722
